FAERS Safety Report 6062473-0 (Version None)
Quarter: 2009Q1

REPORT INFORMATION
  Report Type: 
  Country: None (occurrence: None)
  Receive Date: 20090202
  Receipt Date: 20090202
  Transmission Date: 20090719
  Serious: Yes (Hospitalization)
  Sender: FDA-Public Use
  Company Number: None

PATIENT
  Sex: Male
  Weight: 95.3461 kg

DRUGS (2)
  1. SORAFENIB [Suspect]
  2. ERLOTINIB [Suspect]

REACTIONS (4)
  - ABDOMINAL PAIN LOWER [None]
  - FATIGUE [None]
  - NAUSEA [None]
  - VOMITING [None]
